FAERS Safety Report 9193643 (Version 2)
Quarter: 2013Q3

REPORT INFORMATION
  Report Type: Report from Study
  Country: JP (occurrence: JP)
  Receive Date: 20130327
  Receipt Date: 20130906
  Transmission Date: 20140515
  Serious: Yes (Hospitalization)
  Sender: FDA-Public Use
  Company Number: JP-VIIV HEALTHCARE LIMITED-B0860191A

PATIENT
  Age: 5 Decade
  Sex: Male
  Weight: 65 kg

DRUGS (16)
  1. LEXIVA [Suspect]
     Indication: HIV INFECTION
     Dosage: 1400MG PER DAY
     Route: 048
     Dates: start: 20091222
  2. EPZICOM [Suspect]
     Indication: HIV INFECTION
     Route: 048
     Dates: start: 20060112, end: 20111108
  3. NORVIR [Suspect]
     Indication: HIV INFECTION
     Route: 048
     Dates: start: 20060112, end: 20110530
  4. REYATAZ [Suspect]
     Indication: HIV INFECTION
     Route: 048
     Dates: start: 20060112, end: 20091221
  5. NORVIR [Suspect]
     Indication: HIV INFECTION
     Route: 048
     Dates: start: 20110531
  6. TRUVADA [Concomitant]
     Indication: HIV INFECTION
     Route: 048
     Dates: start: 20111109
  7. BIOFERMIN R [Concomitant]
     Indication: DIARRHOEA
     Dosage: 1IUAX THREE TIMES PER DAY
     Route: 048
     Dates: start: 20110715, end: 20110722
  8. PEGASYS [Concomitant]
     Indication: ACUTE HEPATITIS C
     Route: 058
     Dates: start: 20120401, end: 20130306
  9. COPEGUS [Concomitant]
     Indication: ACUTE HEPATITIS C
     Dosage: 400MG TWICE PER DAY
     Route: 048
     Dates: start: 20120401, end: 20130312
  10. DIFLUCAN [Concomitant]
     Indication: ORAL CANDIDIASIS
     Dosage: 100MG PER DAY
     Route: 065
     Dates: start: 20120718, end: 20120722
  11. DIFLUCAN [Concomitant]
     Indication: ORAL CANDIDIASIS
     Dosage: 100MG PER DAY
     Route: 065
     Dates: start: 20120725, end: 20120729
  12. DIFLUCAN [Concomitant]
     Indication: ORAL CANDIDIASIS
     Dosage: 100MG PER DAY
     Route: 065
     Dates: start: 20121010, end: 20121014
  13. DIFLUCAN [Concomitant]
     Indication: ORAL CANDIDIASIS
     Dosage: 100MG PER DAY
     Route: 065
     Dates: start: 20121212, end: 20121216
  14. DIFLUCAN [Concomitant]
     Indication: ORAL CANDIDIASIS
     Dosage: 100MG PER DAY
     Route: 065
     Dates: start: 20130220, end: 20130224
  15. DIFLUCAN [Concomitant]
     Indication: ORAL CANDIDIASIS
     Dosage: 100MG PER DAY
     Route: 065
     Dates: start: 20130227, end: 20130303
  16. CRAVIT [Concomitant]
     Indication: PNEUMONIA
     Dosage: 500MG PER DAY
     Route: 065
     Dates: start: 20121128, end: 20121211

REACTIONS (5)
  - Acute hepatitis C [Recovering/Resolving]
  - Nephrolithiasis [Recovering/Resolving]
  - Pneumonia [Recovering/Resolving]
  - Pharyngitis [Recovered/Resolved]
  - Oral candidiasis [Recovering/Resolving]
